FAERS Safety Report 6844858-5 (Version None)
Quarter: 2010Q3

REPORT INFORMATION
  Report Type: 
  Country: None (occurrence: None)
  Receive Date: 20100715
  Receipt Date: 20100705
  Transmission Date: 20110219
  Serious: Yes (Hospitalization)
  Sender: FDA-Public Use
  Company Number: JP-SANOFI-AVENTIS-2010SA040178

PATIENT
  Age: 47 Year
  Sex: Female
  Weight: 45 kg

DRUGS (11)
  1. ELPLAT [Suspect]
     Indication: RECTAL CANCER
     Route: 041
     Dates: start: 20091211, end: 20091211
  2. ELPLAT [Suspect]
     Route: 041
     Dates: start: 20100618, end: 20100618
  3. CALCIUM LEVOFOLINATE [Suspect]
     Indication: RECTAL CANCER
     Route: 041
     Dates: start: 20091211, end: 20091211
  4. CALCIUM LEVOFOLINATE [Suspect]
     Route: 041
     Dates: start: 20100618, end: 20100618
  5. FLUOROURACIL [Suspect]
     Indication: RECTAL CANCER
     Route: 040
     Dates: start: 20091211, end: 20091211
  6. FLUOROURACIL [Suspect]
     Route: 041
     Dates: start: 20091211, end: 20091212
  7. FLUOROURACIL [Suspect]
     Route: 040
     Dates: start: 20100618, end: 20100618
  8. FLUOROURACIL [Suspect]
     Route: 041
     Dates: start: 20100618, end: 20100619
  9. AVASTIN [Suspect]
     Indication: RECTAL CANCER
     Route: 041
     Dates: start: 20091211, end: 20091211
  10. AVASTIN [Suspect]
     Route: 041
     Dates: start: 20100618, end: 20100618
  11. MEYLON [Concomitant]
     Route: 041
     Dates: start: 20100620, end: 20100620

REACTIONS (1)
  - HYPERAMMONAEMIA [None]
